FAERS Safety Report 10982679 (Version 5)
Quarter: 2015Q4

REPORT INFORMATION
  Report Type: Report from Study
  Country: DE (occurrence: DE)
  Receive Date: 20150403
  Receipt Date: 20151208
  Transmission Date: 20160304
  Serious: Yes (Hospitalization)
  Sender: FDA-Public Use
  Company Number: DE-ROCHE-1560250

PATIENT
  Age: 71 Year
  Sex: Female
  Weight: 53 kg

DRUGS (12)
  1. RAMIPRIL. [Concomitant]
     Active Substance: RAMIPRIL
     Indication: HYPERTENSION
     Route: 048
  2. BEVACIZUMAB [Suspect]
     Active Substance: BEVACIZUMAB
     Indication: OVARIAN CANCER
     Dosage: MOST RECENT DOSE OF FIRST EPISODE WAS RECEIVED ON 26/MAR/2015.
     Route: 042
     Dates: start: 20150312
  3. CARBOPLATIN. [Suspect]
     Active Substance: CARBOPLATIN
     Indication: OVARIAN CANCER
     Dosage: MOST RECENT DOSE OF FIRST EPISODE WAS RECEIVED ON 12/MAR/2015.
     Route: 042
     Dates: start: 20150312
  4. STALEVO [Concomitant]
     Active Substance: CARBIDOPA\ENTACAPONE\LEVODOPA
     Route: 048
     Dates: start: 2005
  5. REQUIP [Concomitant]
     Active Substance: ROPINIROLE HYDROCHLORIDE
     Indication: PARKINSON^S DISEASE
     Route: 048
     Dates: start: 2005
  6. PEGYLATED LIPOSOMAL DOXORUBICIN [Suspect]
     Active Substance: DOXORUBICIN
     Indication: OVARIAN CANCER
     Dosage: MOST RECENT DOSE OF FIRST EPISODE WAS RECEIVED ON 12/MAR/2015.
     Route: 042
     Dates: start: 20150312
  7. CARBOPLATIN. [Suspect]
     Active Substance: CARBOPLATIN
     Dosage: MOST RECENT DOSE OF SECOND EPISODE WAS RECEIVED ON 9/APR/2015
     Route: 042
  8. PEGYLATED LIPOSOMAL DOXORUBICIN [Suspect]
     Active Substance: DOXORUBICIN
     Dosage: MOST RECENT DOSE OF SECOND EPISODE WAS RECEIVED ON  9/APR/2015
     Route: 042
  9. STALEVO [Concomitant]
     Active Substance: CARBIDOPA\ENTACAPONE\LEVODOPA
     Indication: PARKINSON^S DISEASE
     Route: 048
     Dates: start: 2005
  10. XARELTO [Concomitant]
     Active Substance: RIVAROXABAN
     Route: 048
     Dates: start: 201106
  11. BEVACIZUMAB [Suspect]
     Active Substance: BEVACIZUMAB
     Dosage: MOST RECENT DOSE OF SECOND EPISODE WAS RECEIVED ON  23/APR/2015.
     Route: 042
  12. MADOPAR [Concomitant]
     Active Substance: BENSERAZIDE HYDROCHLORIDE\LEVODOPA
     Indication: PARKINSON^S DISEASE
     Dosage: 100/125MG
     Route: 048
     Dates: start: 2005

REACTIONS (2)
  - Pleural effusion [Recovered/Resolved]
  - Pleural effusion [Recovered/Resolved]

NARRATIVE: CASE EVENT DATE: 20150401
